FAERS Safety Report 7512157-4 (Version None)
Quarter: 2011Q2

REPORT INFORMATION
  Report Type: 
  Country: None (occurrence: None)
  Receive Date: 20110531
  Receipt Date: 20110517
  Transmission Date: 20111010
  Serious: Yes (Hospitalization)
  Sender: FDA-Public Use
  Company Number: US-JNJFOC-20110508166

PATIENT
  Age: 14 Year
  Sex: Male

DRUGS (3)
  1. MERCAPTOPURINE [Concomitant]
  2. INFLIXIMAB, RECOMBINANT [Suspect]
     Indication: CROHN'S DISEASE
     Route: 042
  3. HYDROCORTISONE [Concomitant]
     Indication: CROHN'S DISEASE

REACTIONS (1)
  - HERPES ZOSTER [None]
